FAERS Safety Report 18545967 (Version 1)
Quarter: 2020Q4

REPORT INFORMATION
  Report Type: Spontaneous
  Country: IE (occurrence: IE)
  Receive Date: 20201125
  Receipt Date: 20201125
  Transmission Date: 20210114
  Serious: Yes (Hospitalization)
  Sender: FDA-Public Use
  Company Number: NVSC2020IE310616

PATIENT
  Sex: Male

DRUGS (1)
  1. LOSARTAN POTASSIUM. [Suspect]
     Active Substance: LOSARTAN POTASSIUM
     Indication: PRODUCT USED FOR UNKNOWN INDICATION
     Dosage: 50 MG
     Route: 048

REACTIONS (9)
  - Liver disorder [Unknown]
  - Fatigue [Unknown]
  - Pain in extremity [Unknown]
  - Influenza like illness [Unknown]
  - Abdominal pain upper [Unknown]
  - Adverse event [Unknown]
  - Peripheral swelling [Unknown]
  - Pancreatic disorder [Unknown]
  - Renal disorder [Unknown]
